FAERS Safety Report 10387000 (Version 1)
Quarter: 2014Q1

REPORT INFORMATION
  Report Type: Spontaneous
  Country: US (occurrence: None)
  Receive Date: 20140306
  Receipt Date: 20140306
  Transmission Date: 20141002
  Serious: Yes (Other)
  Sender: FDA-Public Use
  Company Number: 163-21880-13042987

PATIENT
  Age: 58 Year
  Sex: Female

DRUGS (16)
  1. REVLIMID (LENALIDOMIDE) (10 MILLIGRAM, CAPSULES) [Suspect]
     Indication: PLASMA CELL MYELOMA
     Route: 048
     Dates: start: 201011
  2. BORTEZOMIB [Concomitant]
  3. PREDNISONE [Concomitant]
  4. ALKERAN (MELPHALAN) (MELPHALAN) [Concomitant]
  5. CALCITRIOL [Concomitant]
  6. ERYTHROPOIETIN [Concomitant]
  7. MAGNESIUM OXIDE [Concomitant]
  8. NORVASC (AMLODIPINE BESILATE) [Concomitant]
  9. QUININE SULFATE [Concomitant]
  10. RENVELA (SEVELAMER CARBONATE) [Concomitant]
  11. VENOFER (SACCHARATED IRON OXIDE) [Concomitant]
  12. VITAMIN B [Concomitant]
  13. ACYCLOVIR (ACICLOVIR) (ACICLOVIR) [Concomitant]
  14. ERGOCALCIFEROL [Concomitant]
  15. NEXIUM (ESOMEPRAZOLE) [Concomitant]
  16. SYNTHROID (LEVOTHYROXINE SODIUM) [Concomitant]

REACTIONS (2)
  - Muscle spasms [None]
  - Renal failure chronic [None]
